FAERS Safety Report 16636418 (Version 9)
Quarter: 2023Q1

REPORT INFORMATION
  Report Type: Spontaneous
  Country: US (occurrence: US)
  Receive Date: 20190726
  Receipt Date: 20230105
  Transmission Date: 20230417
  Serious: Yes (Hospitalization)
  Sender: FDA-Public Use
  Company Number: US-PFIZER INC-2019244117

PATIENT
  Age: 58 Year
  Sex: Female
  Weight: 70.31 kg

DRUGS (5)
  1. BOSULIF [Suspect]
     Active Substance: BOSUTINIB MONOHYDRATE
     Indication: Chronic myeloid leukaemia
     Dosage: UNK
     Dates: start: 201810
  2. BOSULIF [Suspect]
     Active Substance: BOSUTINIB MONOHYDRATE
     Dosage: 100 MG, DAILY
     Dates: start: 201811
  3. BOSULIF [Suspect]
     Active Substance: BOSUTINIB MONOHYDRATE
     Dosage: 200 MG, DAILY
  4. BOSULIF [Suspect]
     Active Substance: BOSUTINIB MONOHYDRATE
     Dosage: 300 MG, DAILY
  5. BOSULIF [Suspect]
     Active Substance: BOSUTINIB MONOHYDRATE
     Dosage: UNK

REACTIONS (12)
  - Pyrexia [Unknown]
  - Insomnia [Unknown]
  - Depression [Unknown]
  - Thinking abnormal [Unknown]
  - Arthropathy [Not Recovered/Not Resolved]
  - Functional gastrointestinal disorder [Unknown]
  - Cardiomegaly [Unknown]
  - Tumour marker increased [Unknown]
  - Periorbital swelling [Unknown]
  - Abdominal mass [Unknown]
  - Bacterial infection [Unknown]
  - Balance disorder [Unknown]

NARRATIVE: CASE EVENT DATE: 20200528
